FAERS Safety Report 14586781 (Version 3)
Quarter: 2018Q4

REPORT INFORMATION
  Report Type: Spontaneous
  Country: JP (occurrence: JP)
  Receive Date: 20180301
  Receipt Date: 20181214
  Transmission Date: 20190204
  Serious: Yes (Life-Threatening, Hospitalization, Other)
  Sender: FDA-Public Use
  Company Number: JP-SA-2017SA263917

PATIENT
  Age: 70 Year
  Sex: Male
  Weight: 69 kg

DRUGS (16)
  1. 5-FU [FLUOROURACIL] [Concomitant]
     Active Substance: FLUOROURACIL
     Dosage: 2400 MG/M2, QOW
     Route: 042
     Dates: start: 20171013, end: 20171210
  2. ALOXI [Concomitant]
     Active Substance: PALONOSETRON HYDROCHLORIDE
     Indication: PREMEDICATION
     Dosage: 0.75 MG, QOW
     Route: 042
     Dates: start: 20170922, end: 20170922
  3. 5-FU [FLUOROURACIL] [Concomitant]
     Active Substance: FLUOROURACIL
     Dosage: 400 MG/M2, QOW
     Route: 042
     Dates: start: 20171013, end: 20171208
  4. LEVOFOLINATE [CALCIUM LEVOFOLINATE] [Concomitant]
     Active Substance: LEVOLEUCOVORIN CALCIUM
     Indication: RECTOSIGMOID CANCER RECURRENT
     Dosage: 200 MG/M2, QOW
     Route: 042
     Dates: start: 20170922, end: 20170922
  5. RABEPRAZOLE SODIUM. [Concomitant]
     Active Substance: RABEPRAZOLE SODIUM
     Indication: DUODENAL ULCER
     Dosage: 10 MG, QD
     Route: 048
  6. ZALTRAP [Suspect]
     Active Substance: ZIV-AFLIBERCEPT
     Indication: RECTOSIGMOID CANCER RECURRENT
     Dosage: 4 MG/KG, QOW
     Route: 042
     Dates: start: 20171013, end: 20171208
  7. IRINOTECAN [Suspect]
     Active Substance: IRINOTECAN
     Indication: RECTOSIGMOID CANCER RECURRENT
     Dosage: 150 MG/M2, QOW
     Route: 042
     Dates: start: 20171013, end: 20171208
  8. 5-FU [FLUOROURACIL] [Concomitant]
     Active Substance: FLUOROURACIL
     Dosage: 2400 MG/M2, QOW
     Route: 042
     Dates: start: 20170922, end: 20170922
  9. LEVOFOLINATE [CALCIUM LEVOFOLINATE] [Concomitant]
     Active Substance: LEVOLEUCOVORIN CALCIUM
     Dosage: 200 MG/M2, QOW
     Route: 042
     Dates: start: 20171013, end: 20171208
  10. DEXART [Concomitant]
     Active Substance: DEXAMETHASONE SODIUM PHOSPHATE
     Dosage: 6.6 MG, QOW
     Route: 042
     Dates: start: 20171013, end: 20171208
  11. OXALIPLATIN. [Concomitant]
     Active Substance: OXALIPLATIN
     Indication: RECTOSIGMOID CANCER RECURRENT
     Dosage: UNK
     Route: 065
     Dates: start: 201709
  12. IRINOTECAN [Suspect]
     Active Substance: IRINOTECAN
     Dosage: 150 MG/M2, QOW
     Route: 042
     Dates: start: 20170922, end: 20170922
  13. DEXART [Concomitant]
     Active Substance: DEXAMETHASONE SODIUM PHOSPHATE
     Indication: PREMEDICATION
     Dosage: 6.6 MG, QOW
     Route: 042
     Dates: start: 20170922, end: 20170922
  14. ZALTRAP [Suspect]
     Active Substance: ZIV-AFLIBERCEPT
     Dosage: 4 MG/KG, QOW
     Route: 042
     Dates: start: 20170922, end: 20170922
  15. ALOXI [Concomitant]
     Active Substance: PALONOSETRON HYDROCHLORIDE
     Dosage: 0.75 MG, QOW
     Route: 042
     Dates: start: 20171013, end: 20171208
  16. 5-FU [FLUOROURACIL] [Concomitant]
     Active Substance: FLUOROURACIL
     Indication: RECTOSIGMOID CANCER RECURRENT
     Dosage: 400 MG/M2, QOW
     Route: 042
     Dates: start: 20170922, end: 20170922

REACTIONS (6)
  - White blood cell count decreased [Recovered/Resolved]
  - Blood urea increased [Recovered/Resolved]
  - Febrile neutropenia [Recovered/Resolved]
  - Small intestinal perforation [Recovering/Resolving]
  - Platelet count decreased [Recovering/Resolving]
  - Peritonitis [Recovering/Resolving]

NARRATIVE: CASE EVENT DATE: 20171211
